FAERS Safety Report 11443220 (Version 5)
Quarter: 2017Q3

REPORT INFORMATION
  Report Type: Spontaneous
  Country: US (occurrence: US)
  Receive Date: 20150901
  Receipt Date: 20170707
  Transmission Date: 20171127
  Serious: Yes (Hospitalization, Disabling)
  Sender: FDA-Public Use
  Company Number: US-LUNDBECK-DKLU2001900

PATIENT
  Age: 43 Year
  Sex: Female

DRUGS (3)
  1. NORTHERA [Suspect]
     Active Substance: DROXIDOPA
     Dosage: TITRATION COMPLETE
     Route: 048
     Dates: start: 201503
  2. NORTHERA [Suspect]
     Active Substance: DROXIDOPA
     Indication: AUTONOMIC NEUROPATHY
     Route: 048
  3. NORTHERA [Suspect]
     Active Substance: DROXIDOPA
     Indication: AUTONOMIC FAILURE SYNDROME
     Dosage: TITRATION COMPLETE
     Route: 048
     Dates: start: 201503

REACTIONS (13)
  - Migraine [Unknown]
  - Insomnia [Unknown]
  - Dizziness [Unknown]
  - Therapeutic response unexpected [Unknown]
  - Memory impairment [Unknown]
  - Hypoacusis [Unknown]
  - Blood pressure decreased [Unknown]
  - Fall [Unknown]
  - Hemiplegic migraine [Unknown]
  - Incontinence [Unknown]
  - Unresponsive to stimuli [Unknown]
  - Phlebitis [Unknown]
  - Vertigo [Unknown]

NARRATIVE: CASE EVENT DATE: 20150715
